FAERS Safety Report 9915838 (Version 2)
Quarter: 2014Q1

REPORT INFORMATION
  Report Type: Spontaneous
  Country: IL (occurrence: None)
  Receive Date: 20140218
  Receipt Date: 20140221
  Transmission Date: 20141002
  Serious: No
  Sender: FDA-Public Use
  Company Number: 7269151

PATIENT
  Sex: Male

DRUGS (1)
  1. EUTHYROX [Suspect]
     Indication: HYPOTHYROIDISM
     Dosage: 50 MCG (50 MCG, 1 IN 1 D ) ORAL
     Route: 048
     Dates: start: 2013

REACTIONS (7)
  - Fall [None]
  - Mood altered [None]
  - Fatigue [None]
  - Blood test abnormal [None]
  - Insomnia [None]
  - Headache [None]
  - Product substitution issue [None]
